FAERS Safety Report 6468764-3 (Version None)
Quarter: 2009Q4

REPORT INFORMATION
  Report Type: 
  Country: None (occurrence: None)
  Receive Date: 20091203
  Receipt Date: 20091113
  Transmission Date: 20100525
  Serious: No
  Sender: FDA-Public Use
  Company Number: US-BAYER-200941374NA

PATIENT
  Age: 45 Year
  Sex: Female
  Weight: 75 kg

DRUGS (1)
  1. MAGNEVIST [Suspect]
     Indication: NUCLEAR MAGNETIC RESONANCE IMAGING BRAIN
     Dosage: TOTAL DAILY DOSE: 16 ML  UNIT DOSE: 20 ML
     Route: 042
     Dates: start: 20091111, end: 20091111

REACTIONS (3)
  - HYPOAESTHESIA ORAL [None]
  - LIP SWELLING [None]
  - NAUSEA [None]
